FAERS Safety Report 24641848 (Version 4)
Quarter: 2024Q4

REPORT INFORMATION
  Report Type: Spontaneous
  Country: US (occurrence: US)
  Receive Date: 20241120
  Receipt Date: 20241223
  Transmission Date: 20250114
  Serious: No
  Sender: PFIZER
  Company Number: US-PFIZER INC-202400301374

PATIENT
  Age: 13 Year
  Sex: Male
  Weight: 36.29 kg

DRUGS (1)
  1. GENOTROPIN [Suspect]
     Active Substance: SOMATROPIN
     Dosage: 1.6 MG, DAILY
     Dates: start: 20240105

REACTIONS (9)
  - Device issue [Unknown]
  - Device leakage [Unknown]
  - Poor quality device used [Unknown]
  - Device malfunction [Unknown]
  - Drug dose omission by device [Unknown]
  - Device mechanical issue [Unknown]
  - Device physical property issue [Unknown]
  - Product reconstitution quality issue [Unknown]
  - Wrong technique in device usage process [Unknown]
